FAERS Safety Report 23657736 (Version 1)
Quarter: 2024Q1

REPORT INFORMATION
  Report Type: Spontaneous
  Country: US (occurrence: None)
  Receive Date: 20240320
  Receipt Date: 20240320
  Transmission Date: 20240410
  Serious: Yes (Hospitalization)
  Sender: FDA-Public Use
  Company Number: None

PATIENT
  Sex: Male

DRUGS (4)
  1. OXBRYTA [Suspect]
     Active Substance: VOXELOTOR
     Indication: Sickle cell disease
     Dosage: OTHER FREQUENCY : EVERY3DAYS;?
     Route: 048
     Dates: start: 202206
  2. OXBRYTA [Concomitant]
  3. ADAKVEO SDV [Concomitant]
  4. ENDARI [Concomitant]

REACTIONS (1)
  - Sickle cell anaemia with crisis [None]
